FAERS Safety Report 11009302 (Version 1)
Quarter: 2015Q2

REPORT INFORMATION
  Report Type: Spontaneous
  Country: FR (occurrence: FR)
  Receive Date: 20150410
  Receipt Date: 20150410
  Transmission Date: 20150821
  Serious: Yes (Hospitalization, Other)
  Sender: FDA-Public Use
  Company Number: FR-PFIZER INC-2015117991

PATIENT
  Age: 32 Year
  Sex: Female

DRUGS (3)
  1. HUMIRA [Suspect]
     Active Substance: ADALIMUMAB
     Dosage: 1 DF, EVERY 3 WEEKS
     Route: 058
     Dates: start: 20140224, end: 20150317
  2. COLCHICINE HOUDE [Suspect]
     Active Substance: COLCHICINE
     Dosage: 1 DF, ONCE DAILY
     Route: 048
     Dates: start: 2007
  3. SALAZOPYRINE [Suspect]
     Active Substance: SULFASALAZINE
     Dosage: 1 G, ONCE DAILY
     Route: 048
     Dates: start: 20110424

REACTIONS (1)
  - Dermatofibrosarcoma protuberans [Not Recovered/Not Resolved]

NARRATIVE: CASE EVENT DATE: 201502
